FAERS Safety Report 4975161-6 (Version None)
Quarter: 2006Q2

REPORT INFORMATION
  Report Type: 
  Country: None (occurrence: None)
  Receive Date: 20060417
  Receipt Date: 20060417
  Transmission Date: 20061013
  Serious: Yes (Life-Threatening)
  Sender: FDA-Public Use
  Company Number: None

PATIENT
  Age: 48 Year
  Sex: Female
  Weight: 68.0396 kg

DRUGS (1)
  1. AMBIEN [Suspect]
     Indication: INSOMNIA
     Dosage: 10MG   QHS   PO
     Route: 048
     Dates: start: 20051228, end: 20060402

REACTIONS (3)
  - ABNORMAL SLEEP-RELATED EVENT [None]
  - SLEEP TALKING [None]
  - SLEEP WALKING [None]
